FAERS Safety Report 7572847-4 (Version None)
Quarter: 2011Q2

REPORT INFORMATION
  Report Type: 
  Country: None (occurrence: None)
  Receive Date: 20110627
  Receipt Date: 20101008
  Transmission Date: 20111010
  Serious: No
  Sender: FDA-Public Use
  Company Number: US-PFIZER INC-US-WYE-H18101410

PATIENT
  Age: 5 Year
  Sex: Male
  Weight: 22.2 kg

DRUGS (2)
  1. CHILDREN'S ADVIL [Suspect]
     Indication: PYREXIA
     Dosage: ONE AND ONE HALF TEASPOONS ONCE
     Route: 048
     Dates: start: 20101008, end: 20101008
  2. CHILDREN'S ADVIL [Suspect]
     Indication: RHINORRHOEA

REACTIONS (2)
  - URTICARIA [None]
  - SWELLING [None]
